FAERS Safety Report 12336583 (Version 1)
Quarter: 2016Q2

REPORT INFORMATION
  Report Type: Spontaneous
  Country: GB (occurrence: GB)
  Receive Date: 20160505
  Receipt Date: 20160505
  Transmission Date: 20160815
  Serious: Yes (Other)
  Sender: FDA-Public Use
  Company Number: GB-DEXPHARM-20160771

PATIENT
  Age: 62 Year
  Sex: Female
  Weight: 67 kg

DRUGS (11)
  1. OMEPRAZOLE. [Suspect]
     Active Substance: OMEPRAZOLE
  2. CIPROFLOXACIN. [Concomitant]
     Active Substance: CIPROFLOXACIN
     Dosage: DAILY DOSE: 2 DF DOSAGE FORM EVERY DAYS
     Dates: start: 20160209, end: 20160216
  3. LEVOTHYROXINE. [Concomitant]
     Active Substance: LEVOTHYROXINE
     Dosage: DAILY DOSE: 1 DF DOSAGE FORM EVERY DAYS
     Dates: start: 20150928
  4. RANITIDINE. [Concomitant]
     Active Substance: RANITIDINE
     Dosage: DAILY DOSE: 2 DF DOSAGE FORM EVERY DAYS
     Dates: start: 20151214
  5. CLOTRIMAZOLE. [Concomitant]
     Active Substance: CLOTRIMAZOLE
     Dosage: INSERT AT NIGHT
     Dates: start: 20160209, end: 20160215
  6. DOXYCYCLINE. [Concomitant]
     Active Substance: DOXYCYCLINE
     Indication: RESPIRATORY TRACT INFECTION
     Dosage: TAKE 2 CAPSULES ON DAY 1
     Dates: start: 20160121, end: 20160122
  7. CO-AMOXICLAV [Concomitant]
     Active Substance: AMOXICILLIN\CLAVULANIC ACID
     Dosage: DAILY DOSE: 3 DF DOSAGE FORM EVERY DAYS
     Dates: start: 20160201, end: 20160208
  8. SALBUTAMOL [Concomitant]
     Active Substance: ALBUTEROL
     Route: 055
     Dates: start: 20160307, end: 20160314
  9. LANSOPRAZOLE. [Suspect]
     Active Substance: LANSOPRAZOLE
     Dates: start: 20160418
  10. AMOXICILLIN. [Concomitant]
     Active Substance: AMOXICILLIN
     Dosage: DAILY DOSE: 3 DF DOSAGE FORM EVERY DAYS
     Dates: start: 20160125, end: 20160201
  11. PREDNISOLONE. [Concomitant]
     Active Substance: PREDNISOLONE
     Dosage: TAKE 4 DAILY FOR 3 DAYS THEN REDUCE BY ONE EVERY 3 DAYS TO STOP
     Dates: start: 20160201, end: 20160208

REACTIONS (2)
  - Drug hypersensitivity [Unknown]
  - Vomiting [Recovered/Resolved with Sequelae]

NARRATIVE: CASE EVENT DATE: 20160418
